FAERS Safety Report 25121503 (Version 1)
Quarter: 2025Q1

REPORT INFORMATION
  Report Type: Report from Study
  Country: CN (occurrence: CN)
  Receive Date: 20250326
  Receipt Date: 20250326
  Transmission Date: 20250408
  Serious: Yes (Other)
  Sender: ROCHE
  Company Number: CN-ROCHE-10000111454

PATIENT
  Age: 51 Year
  Sex: Female
  Weight: 56 kg

DRUGS (35)
  1. ADO-TRASTUZUMAB EMTANSINE [Suspect]
     Active Substance: ADO-TRASTUZUMAB EMTANSINE
     Indication: Breast cancer
     Dosage: ON 26/JUN/2024, 18 JUL 2024: MOST RECENT DOSE OF MEDICINAL PRODUCT PRIOR TO AE ONSET- 170 MG
     Route: 042
     Dates: start: 20240626
  2. PREDNISOLONE [Concomitant]
     Active Substance: PREDNISOLONE
     Route: 042
     Dates: start: 20240626, end: 20240628
  3. PREDNISOLONE [Concomitant]
     Active Substance: PREDNISOLONE
     Route: 042
     Dates: start: 20240718, end: 20240718
  4. PALONOSETRON HYDROCHLORIDE [Concomitant]
     Active Substance: PALONOSETRON HYDROCHLORIDE
     Route: 042
     Dates: start: 20240626, end: 20240626
  5. Tropisetron injection [Concomitant]
     Indication: Vomiting
     Route: 042
     Dates: start: 20240719, end: 20240719
  6. Tropisetron injection [Concomitant]
     Route: 042
     Dates: start: 20240626, end: 20240629
  7. BUDESONIDE [Concomitant]
     Active Substance: BUDESONIDE
     Route: 055
     Dates: start: 20240626, end: 20240629
  8. CIMETIDINE [Concomitant]
     Active Substance: CIMETIDINE
     Indication: Prophylaxis
     Route: 042
     Dates: start: 20240626, end: 20240628
  9. CIMETIDINE [Concomitant]
     Active Substance: CIMETIDINE
     Route: 042
     Dates: start: 20240719, end: 20240719
  10. TIOPRONIN [Concomitant]
     Active Substance: TIOPRONIN
     Route: 042
     Dates: start: 20240626, end: 20240628
  11. TIOPRONIN [Concomitant]
     Active Substance: TIOPRONIN
     Route: 042
     Dates: start: 20240719, end: 20241019
  12. POTASSIUM CHLORIDE [Concomitant]
     Active Substance: POTASSIUM CHLORIDE
     Dates: start: 20240624, end: 20240628
  13. DIPHENHYDRAMINE HYDROCHLORIDE [Concomitant]
     Active Substance: DIPHENHYDRAMINE HYDROCHLORIDE
     Route: 030
     Dates: start: 20240624, end: 20240627
  14. DIPHENHYDRAMINE HYDROCHLORIDE [Concomitant]
     Active Substance: DIPHENHYDRAMINE HYDROCHLORIDE
     Route: 030
     Dates: start: 20240718, end: 20240718
  15. IBANDRONATE SODIUM [Concomitant]
     Active Substance: IBANDRONATE SODIUM
     Route: 042
     Dates: start: 20240624, end: 20240627
  16. IBANDRONATE SODIUM [Concomitant]
     Active Substance: IBANDRONATE SODIUM
     Route: 042
     Dates: start: 20240722, end: 20240723
  17. Calcium gluconate sodium chloride [Concomitant]
     Route: 042
     Dates: start: 20240624, end: 20240628
  18. DEXAMETHASONE SODIUM PHOSPHATE [Concomitant]
     Active Substance: DEXAMETHASONE SODIUM PHOSPHATE
     Route: 042
     Dates: start: 20240624, end: 20240628
  19. DEXAMETHASONE SODIUM PHOSPHATE [Concomitant]
     Active Substance: DEXAMETHASONE SODIUM PHOSPHATE
     Route: 042
     Dates: start: 20240718, end: 20240718
  20. MANNITOL [Concomitant]
     Active Substance: MANNITOL
     Indication: Intracranial pressure increased
     Route: 042
     Dates: start: 20240624, end: 20240628
  21. POTASSIUM CHLORIDE [Concomitant]
     Active Substance: POTASSIUM CHLORIDE
     Indication: Hypokalaemia
     Route: 042
     Dates: start: 20240624, end: 20240628
  22. TIOPRONIN [Concomitant]
     Active Substance: TIOPRONIN
     Dates: start: 20240719, end: 20241019
  23. TIOPRONIN [Concomitant]
     Active Substance: TIOPRONIN
     Route: 042
     Dates: start: 20240626, end: 20240628
  24. BUDESONIDE [Concomitant]
     Active Substance: BUDESONIDE
     Dates: start: 20240626, end: 20240626
  25. TROPISETRON [Concomitant]
     Active Substance: TROPISETRON
     Dates: start: 20240719, end: 20240719
  26. PALONOSETRON HYDROCHLORIDE [Concomitant]
     Active Substance: PALONOSETRON HYDROCHLORIDE
     Route: 042
     Dates: start: 20240626
  27. PREDNISOLONE [Concomitant]
     Active Substance: PREDNISOLONE
     Route: 042
     Dates: start: 20240626, end: 20240628
  28. RIVAROXABAN [Concomitant]
     Active Substance: RIVAROXABAN
  29. ibuprofen codeine [Concomitant]
     Route: 048
     Dates: start: 20240624
  30. MEGESTROL [Concomitant]
     Active Substance: MEGESTROL
     Route: 048
     Dates: start: 20240725
  31. HEPARIN SODIUM [Concomitant]
     Active Substance: HEPARIN SODIUM
     Dosage: 4250
     Route: 058
     Dates: start: 20240719, end: 20240721
  32. HEPARIN SODIUM [Concomitant]
     Active Substance: HEPARIN SODIUM
     Dosage: 4250
     Route: 058
     Dates: start: 20240718, end: 20240719
  33. AMIFOSTINE [Concomitant]
     Active Substance: AMIFOSTINE
     Dosage: FREEZE-DRIED POWDER NEEDLE
     Route: 042
     Dates: start: 20240626, end: 20240626
  34. AMIFOSTINE [Concomitant]
     Active Substance: AMIFOSTINE
     Dosage: FREEZE-DRIED POWDER NEEDLE
     Route: 042
     Dates: start: 20240718, end: 20240718
  35. RIVAROXABAN [Concomitant]
     Active Substance: RIVAROXABAN
     Indication: Thrombosis prophylaxis
     Route: 048
     Dates: start: 20240718

REACTIONS (6)
  - Nausea [Recovered/Resolved]
  - Vomiting [Recovered/Resolved]
  - Neutrophil count increased [Recovered/Resolved]
  - White blood cell count increased [Recovered/Resolved]
  - Thrombocytopenia [Recovered/Resolved]
  - Platelet count decreased [Recovering/Resolving]

NARRATIVE: CASE EVENT DATE: 20240626
